FAERS Safety Report 20192720 (Version 2)
Quarter: 2022Q1

REPORT INFORMATION
  Report Type: Spontaneous
  Country: US (occurrence: None)
  Receive Date: 20211216
  Receipt Date: 20220107
  Transmission Date: 20220424
  Serious: No
  Sender: FDA-Public Use
  Company Number: 2021A864401

PATIENT
  Sex: Male
  Weight: 54.4 kg

DRUGS (4)
  1. BUDESONIDE\FORMOTEROL\GLYCOPYRRONIUM [Suspect]
     Active Substance: BUDESONIDE\FORMOTEROL\GLYCOPYRRONIUM
     Indication: Chronic obstructive pulmonary disease
     Dosage: 120 ACTUATIONS INHALER, 2 PUFFS, TWICE DAILY
     Route: 055
     Dates: start: 20210923
  2. SYMBICORT [Suspect]
     Active Substance: BUDESONIDE\FORMOTEROL FUMARATE DIHYDRATE
     Indication: Chronic obstructive pulmonary disease
     Dosage: 160/4.5 MCG, 120 ACTUATIONS, 2 PUFFS, TWICE DAILY
     Route: 055
  3. INCRUSE ELLIPTA [Concomitant]
     Active Substance: UMECLIDINIUM BROMIDE
  4. OXYGEN [Concomitant]
     Active Substance: OXYGEN

REACTIONS (5)
  - Oxygen saturation decreased [Not Recovered/Not Resolved]
  - Chronic obstructive pulmonary disease [Unknown]
  - Product dose omission issue [Unknown]
  - Wrong technique in device usage process [Unknown]
  - Intentional device misuse [Recovered/Resolved]
